FAERS Safety Report 8187308-1 (Version None)
Quarter: 2012Q1

REPORT INFORMATION
  Report Type: 
  Country: None (occurrence: None)
  Receive Date: 20120216
  Receipt Date: 20111130
  Transmission Date: 20120608
  Serious: Yes (Hospitalization)
  Sender: FDA-Public Use
  Company Number: 20111130CINRY2489

PATIENT
  Age: 46 Year
  Sex: Female

DRUGS (6)
  1. RANITIDINE HYDROCHLORIDE [Concomitant]
  2. METFORMIN HCL [Concomitant]
  3. KALBITOR [Concomitant]
  4. ATENOLOL [Concomitant]
  5. CINRYZE [Suspect]
     Indication: PROPHYLAXIS
     Dosage: (1000 IU, 1 IN 2 D), INTRAVENOUS
     Route: 042
     Dates: start: 20110724
  6. CINRYZE [Suspect]
     Indication: HEREDITARY ANGIOEDEMA
     Dosage: (1000 IU, 1 IN 2 D), INTRAVENOUS
     Route: 042
     Dates: start: 20110724

REACTIONS (5)
  - DRUG EFFECT DECREASED [None]
  - MENSTRUATION IRREGULAR [None]
  - HAEMORRHAGE [None]
  - INAPPROPRIATE SCHEDULE OF DRUG ADMINISTRATION [None]
  - HEREDITARY ANGIOEDEMA [None]
